FAERS Safety Report 12443765 (Version 1)
Quarter: 2016Q2

REPORT INFORMATION
  Report Type: Spontaneous
  Country: ZA (occurrence: ZA)
  Receive Date: 20160607
  Receipt Date: 20160607
  Transmission Date: 20160815
  Serious: Yes (Hospitalization)
  Sender: FDA-Public Use
  Company Number: ZA-MYLANLABS-2016M1022821

PATIENT

DRUGS (9)
  1. ASPEN                              /00002701/ [Concomitant]
     Indication: ANTICOAGULANT THERAPY
     Dosage: DAILY PER INR
  2. MYLACAND PLUS [Suspect]
     Active Substance: CANDESARTAN CILEXETIL\HYDROCHLOROTHIAZIDE
     Indication: HYPERTENSION
     Dosage: UNK, QD (13 YEARS)
  3. PANTOCID                           /01263204/ [Concomitant]
     Indication: ULCER
     Dosage: 40 MG, QD (6 MONTHS)
  4. HEXARONE [Concomitant]
     Active Substance: AMIODARONE
     Indication: HEART RATE IRREGULAR
     Dosage: 12 HOURLY 4 DAYS
  5. LASIX [Concomitant]
     Active Substance: FUROSEMIDE
     Indication: POLYURIA
     Dosage: UNK, QD 4 DAYS
  6. SPIRACTIN                          /00006201/ [Concomitant]
     Indication: HYPERTENSION
     Dosage: .5 DF, QD
  7. ZOPIVANE [Concomitant]
     Indication: INSOMNIA
     Dosage: 7.5 MG, QD (5 YEARS)
  8. TAMBOCOR [Concomitant]
     Active Substance: FLECAINIDE ACETATE
     Indication: HEART RATE IRREGULAR
     Dosage: UNK (13 YEARS)
     Dates: end: 20151106
  9. INFLAMMIDE [Concomitant]
     Active Substance: BUDESONIDE
     Indication: ASTHMA
     Dosage: 12 HOURLY FOR 10 YEARS

REACTIONS (3)
  - Lung infection [Recovering/Resolving]
  - Arrhythmia [Recovering/Resolving]
  - Urinary tract infection [Recovering/Resolving]

NARRATIVE: CASE EVENT DATE: 20151106
